FAERS Safety Report 11357470 (Version 1)
Quarter: 2015Q3

REPORT INFORMATION
  Report Type: Spontaneous
  Country: US (occurrence: US)
  Receive Date: 20150803
  Receipt Date: 20150803
  Transmission Date: 20151125
  Serious: No
  Sender: FDA-Public Use
  Company Number: US-ELI_LILLY_AND_COMPANY-US201404004792

PATIENT
  Age: 22 Year
  Sex: Female
  Weight: 81.63 kg

DRUGS (3)
  1. ALCOHOL. [Concomitant]
     Active Substance: ALCOHOL
  2. ZYPREXA [Suspect]
     Active Substance: OLANZAPINE
     Dosage: 15MG/DAY
     Dates: end: 2012
  3. ZYPREXA [Suspect]
     Active Substance: OLANZAPINE
     Indication: BIPOLAR DISORDER
     Dosage: 20MG/DAY
     Dates: start: 2004

REACTIONS (6)
  - Weight increased [Unknown]
  - Daydreaming [Unknown]
  - Somnolence [Unknown]
  - Exposure during pregnancy [Recovered/Resolved]
  - Drooling [Unknown]
  - Vomiting in pregnancy [Unknown]
